FAERS Safety Report 6933022-7 (Version None)
Quarter: 2010Q3

REPORT INFORMATION
  Report Type: 
  Country: None (occurrence: None)
  Receive Date: 20100818
  Receipt Date: 20100818
  Transmission Date: 20110219
  Serious: Yes (Hospitalization)
  Sender: FDA-Public Use
  Company Number: None

PATIENT
  Sex: Female
  Weight: 75.5 kg

DRUGS (30)
  1. AVASTIN [Suspect]
     Indication: BREAST CANCER
     Dosage: 15MG/KG 1025MG EVERY 3 WEEKS IV
     Route: 042
     Dates: start: 20100517
  2. AVASTIN [Suspect]
     Indication: BREAST CANCER
     Dosage: 15MG/KG 1025MG EVERY 3 WEEKS IV
     Route: 042
     Dates: start: 20100607
  3. AVASTIN [Suspect]
     Indication: BREAST CANCER
     Dosage: 15MG/KG 1025MG EVERY 3 WEEKS IV
     Route: 042
     Dates: start: 20100628
  4. AVASTIN [Suspect]
     Indication: BREAST CANCER
     Dosage: 15MG/KG 1025MG EVERY 3 WEEKS IV
     Route: 042
     Dates: start: 20100719
  5. AVASTIN [Suspect]
     Indication: BREAST CANCER
     Dosage: 15MG/KG 1025MG EVERY 3 WEEKS IV
     Route: 042
     Dates: start: 20100809
  6. AMBIEN [Concomitant]
  7. ATENOLOL [Concomitant]
  8. CALCIUM [Concomitant]
  9. CELEBREX [Concomitant]
  10. CLINDAGEL [Concomitant]
  11. CLINDAGEL [Concomitant]
  12. CYMBALTA [Concomitant]
  13. EMBACIA [Concomitant]
  14. FEMARA [Concomitant]
  15. GLUCOSAMINE [Concomitant]
  16. LISINOPRIL AND HYDROCHLOROTHIAZIDE [Concomitant]
  17. LASIX [Concomitant]
  18. LIDODERM [Concomitant]
  19. LOMOTIL [Concomitant]
  20. LORAZEPAM [Concomitant]
  21. LORTAB [Concomitant]
  22. MULTI-VITAMIN [Concomitant]
  23. NEXIUM [Concomitant]
  24. NORVASC [Concomitant]
  25. ORACEA [Concomitant]
  26. TRETIN-X [Concomitant]
  27. ULTRAM [Concomitant]
  28. ASCORBIC ACID [Concomitant]
  29. VITAMIN D [Concomitant]
  30. ZOCOR [Concomitant]

REACTIONS (10)
  - BREAST DISCHARGE [None]
  - BREAST MASS [None]
  - BREAST NECROSIS [None]
  - CHILLS [None]
  - ERYTHEMA [None]
  - PAIN [None]
  - PYREXIA [None]
  - SKIN ODOUR ABNORMAL [None]
  - SWELLING [None]
  - WOUND COMPLICATION [None]
